FAERS Safety Report 7499202-X (Version None)
Quarter: 2011Q2

REPORT INFORMATION
  Report Type: 
  Country: None (occurrence: None)
  Receive Date: 20110524
  Receipt Date: 20110506
  Transmission Date: 20111010
  Serious: No
  Sender: FDA-Public Use
  Company Number: US-B.I. PHARMACEUTICALS,INC./RIDGEFIELD-2011-BP-12552BP

PATIENT
  Sex: Male

DRUGS (7)
  1. OXYCODONE HCL [Concomitant]
     Indication: SPINAL LAMINECTOMY
     Route: 048
  2. VALIUM [Concomitant]
     Indication: SPINAL LAMINECTOMY
     Route: 048
  3. OXYGEN [Concomitant]
     Indication: CHRONIC OBSTRUCTIVE PULMONARY DISEASE
     Dates: start: 20110103
  4. VALIUM [Concomitant]
     Indication: BACK PAIN
  5. OXYCODONE HCL [Concomitant]
     Indication: BACK PAIN
  6. ADVAIR DISKUS 100/50 [Concomitant]
     Indication: CHRONIC OBSTRUCTIVE PULMONARY DISEASE
     Route: 055
     Dates: start: 20040101
  7. SPIRIVA [Suspect]
     Indication: CHRONIC OBSTRUCTIVE PULMONARY DISEASE
     Dosage: 18 MCG
     Route: 055
     Dates: start: 20110120

REACTIONS (1)
  - DRUG INEFFECTIVE [None]
